FAERS Safety Report 6040904-X (Version None)
Quarter: 2009Q1

REPORT INFORMATION
  Report Type: 
  Country: None (occurrence: None)
  Receive Date: 20090116
  Receipt Date: 20090114
  Transmission Date: 20090719
  Serious: Yes (Hospitalization)
  Sender: FDA-Public Use
  Company Number: A0763129A

PATIENT
  Age: 43 Year
  Sex: Female
  Weight: 101.4 kg

DRUGS (3)
  1. ALLI [Suspect]
     Route: 048
     Dates: start: 20080101, end: 20080301
  2. PERCOCET [Concomitant]
     Indication: BACK PAIN
     Route: 048
  3. MULTI-VITAMIN [Concomitant]

REACTIONS (4)
  - ABDOMINAL PAIN UPPER [None]
  - DYSPEPSIA [None]
  - GALLBLADDER DISORDER [None]
  - PANCREATITIS [None]
